FAERS Safety Report 4608965-X (Version None)
Quarter: 2005Q1

REPORT INFORMATION
  Report Type: 
  Country: None (occurrence: None)
  Receive Date: 20050310
  Receipt Date: 20050310
  Transmission Date: 20050727
  Serious: Yes (Other)
  Sender: FDA-Public Use
  Company Number: 2005-DE-00716GD

PATIENT

DRUGS (2)
  1. CLONIDINE (CLONIDINE) (NR) (CLONIDINE-HCL) [Suspect]
     Indication: PREMEDICATION
     Dosage: APPROXIMATELY 5MCG/KG; PO
     Route: 048
  2. TETRACAINE POLYGYL STERILE OPHTHALMIC SOLUTION [Concomitant]

REACTIONS (3)
  - BRADYCARDIA [None]
  - PROCEDURAL COMPLICATION [None]
  - PROCEDURAL HYPOTENSION [None]
